FAERS Safety Report 20900975 (Version 1)
Quarter: 2022Q2

REPORT INFORMATION
  Report Type: Spontaneous
  Country: US (occurrence: None)
  Receive Date: 20220601
  Receipt Date: 20220601
  Transmission Date: 20220721
  Serious: No
  Sender: FDA-Public Use
  Company Number: None

PATIENT
  Sex: Male

DRUGS (1)
  1. COSENTYX [Suspect]
     Active Substance: SECUKINUMAB
     Indication: Psoriasis
     Dosage: 150MG EVERY 4 WEEIS SUBCUTANEOUS?
     Route: 058
     Dates: start: 20210615

REACTIONS (2)
  - Psoriasis [None]
  - Condition aggravated [None]
